FAERS Safety Report 14185136 (Version 1)
Quarter: 2017Q4

REPORT INFORMATION
  Report Type: Report from Study
  Country: None (occurrence: IT)
  Receive Date: 20171113
  Receipt Date: 20171113
  Transmission Date: 20180321
  Serious: Yes (Death)
  Sender: FDA-Public Use
  Company Number: IT-ABBVIE-17K-083-2161638-00

PATIENT
  Sex: Male

DRUGS (1)
  1. DUODOPA [Suspect]
     Active Substance: CARBIDOPA\LEVODOPA
     Indication: PARKINSON^S DISEASE
     Dosage: MD 13,5+3??CR 2,2??ED 3,7
     Route: 050
     Dates: start: 20160701

REACTIONS (3)
  - General physical health deterioration [Fatal]
  - Parkinson^s disease [Fatal]
  - Immobile [Fatal]

NARRATIVE: CASE EVENT DATE: 2016
